FAERS Safety Report 20673674 (Version 1)
Quarter: 2022Q2

REPORT INFORMATION
  Report Type: Spontaneous
  Country: US (occurrence: None)
  Receive Date: 20220404
  Receipt Date: 20220404
  Transmission Date: 20220721
  Serious: Yes (Other)
  Sender: FDA-Public Use
  Company Number: None

PATIENT
  Age: 67 Year
  Sex: Female
  Weight: 91 kg

DRUGS (1)
  1. EVUSHELD [Suspect]
     Active Substance: CILGAVIMAB\TIXAGEVIMAB
     Indication: COVID-19
     Dates: start: 20220201, end: 20220201

REACTIONS (3)
  - Drug monitoring procedure not performed [None]
  - Intentional dose omission [None]
  - Refusal of treatment by patient [None]

NARRATIVE: CASE EVENT DATE: 20220201
